FAERS Safety Report 5173527-5 (Version None)
Quarter: 2006Q4

REPORT INFORMATION
  Report Type: 
  Country: None (occurrence: None)
  Receive Date: 20061207
  Receipt Date: 20061207
  Transmission Date: 20070319
  Serious: Yes (Hospitalization)
  Sender: FDA-Public Use
  Company Number: None

PATIENT
  Sex: Male
  Weight: 89.1 kg

DRUGS (3)
  1. ELOXATIN [Suspect]
     Dosage: 175 MG
     Dates: end: 20061108
  2. LEUCOVORIN CALCIUM [Suspect]
     Dosage: 825 MG
     Dates: end: 20061108
  3. FLUOROURACIL [Suspect]
     Dosage: 5250 MG
     Dates: end: 20061108

REACTIONS (5)
  - ABDOMINAL PAIN UPPER [None]
  - ATELECTASIS [None]
  - LUNG INFILTRATION [None]
  - PULMONARY EMBOLISM [None]
  - PULMONARY INFARCTION [None]
